FAERS Safety Report 6372059-6 (Version None)
Quarter: 2009Q3

REPORT INFORMATION
  Report Type: 
  Country: None (occurrence: None)
  Receive Date: 20090917
  Receipt Date: 20090902
  Transmission Date: 20100115
  Serious: Yes (Other)
  Sender: FDA-Public Use
  Company Number: DE-1170333

PATIENT
  Age: 77 Year
  Sex: Male

DRUGS (2)
  1. FLUORESCEIN SODIUM [Suspect]
     Route: 040
     Dates: start: 20090721
  2. ACETYLSALICYLIC ACID [Concomitant]

REACTIONS (5)
  - BLOOD PRESSURE DECREASED [None]
  - CONVULSION [None]
  - DIZZINESS [None]
  - PULSE PRESSURE DECREASED [None]
  - UNRESPONSIVE TO STIMULI [None]
